FAERS Safety Report 21835340 (Version 1)
Quarter: 2023Q1

REPORT INFORMATION
  Report Type: Spontaneous
  Country: BR (occurrence: BR)
  Receive Date: 20230109
  Receipt Date: 20230109
  Transmission Date: 20230417
  Serious: Yes (Death, Other)
  Sender: FDA-Public Use
  Company Number: BR-JNJFOC-20221264729

PATIENT
  Sex: Male
  Weight: 80 kg

DRUGS (3)
  1. IMBRUVICA [Suspect]
     Active Substance: IBRUTINIB
     Indication: Mantle cell lymphoma
     Route: 048
     Dates: start: 20181106, end: 201901
  2. VENETOCLAX [Suspect]
     Active Substance: VENETOCLAX
     Indication: Product used for unknown indication
     Route: 065
     Dates: start: 20181106, end: 201901
  3. PALBOCICLIB [Suspect]
     Active Substance: PALBOCICLIB
     Indication: Product used for unknown indication
     Route: 065
     Dates: start: 20190301, end: 20190406

REACTIONS (7)
  - Death [Fatal]
  - Arrhythmia [Unknown]
  - Fatigue [Unknown]
  - Dizziness [Unknown]
  - Sepsis [Unknown]
  - Asthenia [Unknown]
  - Infection [Unknown]
